FAERS Safety Report 18099756 (Version 1)
Quarter: 2020Q3

REPORT INFORMATION
  Report Type: Spontaneous
  Country: CO (occurrence: CO)
  Receive Date: 20200731
  Receipt Date: 20200731
  Transmission Date: 20201103
  Serious: Yes (Other)
  Sender: FDA-Public Use
  Company Number: NVSC2020CO210956

PATIENT
  Age: 59 Year
  Sex: Female

DRUGS (3)
  1. PALBOCICLIB [Suspect]
     Active Substance: PALBOCICLIB
     Indication: BREAST CANCER STAGE III
     Dosage: 125 MG (21 DAYS AND REST 7 DAYS),
     Route: 048
     Dates: start: 202002
  2. FEMARA [Suspect]
     Active Substance: LETROZOLE
     Indication: PRODUCT USED FOR UNKNOWN INDICATION
     Dosage: UNK
     Route: 065
  3. PALBOCICLIB [Suspect]
     Active Substance: PALBOCICLIB
     Dosage: 100 MG (21 DAYS AND REST 7 DAYS)
     Route: 065

REACTIONS (10)
  - Lacrimation increased [Unknown]
  - Ocular discomfort [Unknown]
  - Eye irritation [Unknown]
  - Dry skin [Unknown]
  - Ephelides [Unknown]
  - Asthenia [Unknown]
  - Skin discolouration [Unknown]
  - Alopecia [Unknown]
  - Platelet count decreased [Recovered/Resolved]
  - Epistaxis [Unknown]

NARRATIVE: CASE EVENT DATE: 202002
